FAERS Safety Report 8496637-3 (Version None)
Quarter: 2012Q3

REPORT INFORMATION
  Report Type: 
  Country: None (occurrence: None)
  Receive Date: 20120709
  Receipt Date: 20120705
  Transmission Date: 20120928
  Serious: No
  Sender: FDA-Public Use
  Company Number: US-B.I. PHARMACEUTICALS,INC./RIDGEFIELD-2012-BP-15072BP

PATIENT
  Age: 88 Year
  Sex: Male

DRUGS (9)
  1. VITAMIN B-12 [Concomitant]
     Indication: ANAEMIA
  2. PRADAXA [Suspect]
     Indication: ATRIAL FIBRILLATION
     Dosage: 150 MG
     Route: 048
     Dates: start: 20120101
  3. NEXIUM [Concomitant]
     Indication: GASTROOESOPHAGEAL REFLUX DISEASE
  4. FOLIC ACID [Concomitant]
     Indication: ANAEMIA
  5. PROCRIT [Concomitant]
     Indication: ANAEMIA
  6. TORSEMIDE [Concomitant]
  7. METOPROLOL [Concomitant]
     Indication: HYPERTENSION
  8. MULTI-VITAMIN [Concomitant]
     Indication: SUPPLEMENTATION THERAPY
  9. SPIRONOLACTONE [Concomitant]

REACTIONS (1)
  - RASH MACULAR [None]
